FAERS Safety Report 9069627 (Version 1)
Quarter: 2013Q1

REPORT INFORMATION
  Report Type: Spontaneous
  Country: CA (occurrence: CA)
  Receive Date: 20130215
  Receipt Date: 20130215
  Transmission Date: 20140127
  Serious: Yes (Other)
  Sender: FDA-Public Use
  Company Number: PHHY2013CA013083

PATIENT
  Sex: 0

DRUGS (26)
  1. GLEEVEC [Suspect]
     Dosage: 400 MG, QD
  2. CYTARABINE [Suspect]
     Dosage: 40 MG, EVERY 3 WEEKS
  3. CYTARABINE [Suspect]
     Dosage: 40 MG, EVERY 30 WEEKS
  4. CYTARABINE [Suspect]
     Dosage: 40 MG, EVERY 4 WEEKS
  5. HYDROCORTISONE ACETATE [Suspect]
     Dosage: 15 MG, EVERY 3 WEEKS
  6. HYDROCORTISONE ACETATE [Suspect]
     Dosage: 15 MG, EVERY 4 WEEKS
  7. HYDROCORTISONE ACETATE [Suspect]
     Dosage: 15 MG, EVERY 30 WEEKS
  8. METHOTREXATE [Suspect]
     Dosage: 12 MG, EVERY 3 WEEKS
  9. METHOTREXATE [Suspect]
     Dosage: 12 MG, EVERY 4 WEEKS
     Route: 042
  10. METHOTREXATE [Suspect]
     Dosage: 12 MG, EVERY 30 WEEKS
  11. METHOTREXATE [Suspect]
     Dosage: 400 MG/M2, UNK
     Route: 042
  12. METHOTREXATE [Suspect]
     Dosage: 30 MG/M2, UNK
  13. DEXAMETHASONE SODIUM PHOSPHATE [Suspect]
     Dosage: 9 MG/M2, BID
     Route: 048
  14. DOXORUBICIN [Suspect]
     Dosage: 30 MG/M2, UNK
     Route: 048
  15. MERCAPTOPURINE [Suspect]
     Dosage: 50 MG/M2, UNK
     Route: 048
  16. L-ASPARAGINASE [Suspect]
     Dosage: UNK UKN, EVERY 4 WEEKS
     Route: 030
  17. L-ASPARAGINASE [Suspect]
     Dosage: UNK UKN, EVERY 30 WEEKS
     Route: 030
  18. LEUCOVORIN [Suspect]
     Dosage: UNK UKN, UNK
  19. VINCRISTIN SULFATE [Suspect]
     Dosage: 2 MG, UNK
  20. PREDNISONE [Suspect]
     Dosage: 10 MG, 4 TIMES A DAY
     Route: 048
  21. THERAPEUTIC RADIOPHARMACEUTICALS [Suspect]
     Dosage: UNK UKN, UNK
  22. ALENDRONATE [Concomitant]
     Dosage: UNK UKN, EVERY 1 WEEK
  23. CALCIUM + VIT D [Concomitant]
     Dosage: UNK UKN, UNK
  24. FLUCONAZOLE [Concomitant]
     Dosage: UNK UKN, UNK
  25. RISEDRONATE SODIUM [Concomitant]
     Dosage: UNK UKN, UNK
  26. TRIMETHOPRIM SULFAMETHOXAZOLE [Concomitant]
     Dosage: UNK UKN, UNK

REACTIONS (1)
  - Asthenia [Unknown]
